FAERS Safety Report 7760721-X (Version None)
Quarter: 2011Q3

REPORT INFORMATION
  Report Type: 
  Country: None (occurrence: None)
  Receive Date: 20110919
  Receipt Date: 20110909
  Transmission Date: 20111222
  Serious: Yes (Other)
  Sender: FDA-Public Use
  Company Number: US-CELGENEUS-163-21880-11080283

PATIENT
  Sex: Female

DRUGS (6)
  1. ZOMETA [Concomitant]
     Dosage: 4MG/5ML
     Route: 041
  2. SYNTHROID [Concomitant]
     Dosage: 88 MICROGRAM
     Route: 048
  3. VASERETIC [Concomitant]
     Dosage: 5-12 MG
     Route: 048
  4. CALTRATE WITH D [Concomitant]
     Dosage: 600-200 UNITS
     Route: 048
  5. REVLIMID [Suspect]
     Indication: MULTIPLE MYELOMA
     Dosage: 25 MILLIGRAM
     Route: 048
     Dates: start: 20090301
  6. DEXAMETHASONE [Concomitant]
     Dosage: 10 MILLIGRAM
     Route: 048

REACTIONS (2)
  - NASOPHARYNGITIS [None]
  - HYPOACUSIS [None]
